FAERS Safety Report 6016687-6 (Version None)
Quarter: 2008Q4

REPORT INFORMATION
  Report Type: 
  Country: None (occurrence: None)
  Receive Date: 20081222
  Receipt Date: 20081215
  Transmission Date: 20090506
  Serious: Yes (Hospitalization)
  Sender: FDA-Public Use
  Company Number: DE-ABBOTT-08P-062-0493112-00

PATIENT
  Sex: Female

DRUGS (2)
  1. HUMIRA [Suspect]
     Indication: CROHN'S DISEASE
     Route: 058
     Dates: start: 20080512, end: 20081024
  2. HUMIRA [Suspect]
     Dates: start: 20081121

REACTIONS (2)
  - ANAL FISTULA [None]
  - NASOPHARYNGITIS [None]
